FAERS Safety Report 14333455 (Version 1)
Quarter: 2017Q4

REPORT INFORMATION
  Report Type: Spontaneous
  Country: US (occurrence: US)
  Receive Date: 20171228
  Receipt Date: 20171228
  Transmission Date: 20180321
  Serious: Yes (Hospitalization)
  Sender: FDA-Public Use
  Company Number: None

PATIENT
  Age: 71 Year
  Sex: Male
  Weight: 110 kg

DRUGS (1)
  1. TOCILIZUMAB. [Suspect]
     Active Substance: TOCILIZUMAB
     Indication: POLYMYALGIA RHEUMATICA
     Dosage: 480 MG (1X 400MG VIAL); (1X 80MG VIAL)
     Dates: start: 20170525

REACTIONS (8)
  - Blister [None]
  - Fall [None]
  - Limb injury [None]
  - Back pain [None]
  - Joint injury [None]
  - Cellulitis [None]
  - Condition aggravated [None]
  - Platelet count decreased [None]

NARRATIVE: CASE EVENT DATE: 20170915
